FAERS Safety Report 21839925 (Version 1)
Quarter: 2023Q1

REPORT INFORMATION
  Report Type: Spontaneous
  Country: BE (occurrence: BE)
  Receive Date: 20230110
  Receipt Date: 20230110
  Transmission Date: 20230418
  Serious: Yes (Other)
  Sender: FDA-Public Use
  Company Number: None

PATIENT
  Age: 23 Year
  Sex: Male
  Weight: 51 kg

DRUGS (6)
  1. PALIPERIDONE PALMITATE [Interacting]
     Active Substance: PALIPERIDONE PALMITATE
     Indication: Extrapyramidal disorder
     Route: 048
  2. PALIPERIDONE PALMITATE [Interacting]
     Active Substance: PALIPERIDONE PALMITATE
  3. PALIPERIDONE PALMITATE [Interacting]
     Active Substance: PALIPERIDONE PALMITATE
  4. ARTANE [Interacting]
     Active Substance: TRIHEXYPHENIDYL HYDROCHLORIDE
     Indication: Extrapyramidal disorder
     Route: 048
     Dates: start: 20210708
  5. LORAZEPAM [Interacting]
     Active Substance: LORAZEPAM
     Indication: Muscle rigidity
     Route: 048
     Dates: start: 20210920, end: 20220201
  6. LORAZEPAM [Interacting]
     Active Substance: LORAZEPAM
     Indication: Extrapyramidal disorder

REACTIONS (14)
  - Hallucination, visual [Recovering/Resolving]
  - Amnesia [Recovering/Resolving]
  - Dry eye [Recovering/Resolving]
  - Dysarthria [Recovering/Resolving]
  - Alexithymia [Recovering/Resolving]
  - Abulia [Recovering/Resolving]
  - Amnestic disorder [Recovering/Resolving]
  - Eye pain [Recovering/Resolving]
  - Drug interaction [Recovering/Resolving]
  - Sensory disturbance [Recovering/Resolving]
  - Dyskinesia [Recovering/Resolving]
  - Salivary hypersecretion [Recovering/Resolving]
  - Off label use [Unknown]
  - Off label use [Unknown]

NARRATIVE: CASE EVENT DATE: 20220129
